FAERS Safety Report 6765208-9 (Version None)
Quarter: 2010Q2

REPORT INFORMATION
  Report Type: 
  Country: None (occurrence: None)
  Receive Date: 20100610
  Receipt Date: 20100610
  Transmission Date: 20101027
  Serious: Yes (Life-Threatening, Other)
  Sender: FDA-Public Use
  Company Number: None

PATIENT
  Age: 55 Year
  Sex: Male
  Weight: 99.7913 kg

DRUGS (1)
  1. HALFLYTELY [Suspect]
     Indication: COLONOSCOPY
     Dosage: 2 TABLETS AT NOON, THEN DRINK 1 PO
     Route: 048
     Dates: start: 20100608, end: 20100608

REACTIONS (10)
  - BLOOD PRESSURE DECREASED [None]
  - CHEST PAIN [None]
  - ERYTHEMA [None]
  - EYE PAIN [None]
  - GASTROINTESTINAL DISORDER [None]
  - HEADACHE [None]
  - HYPERSENSITIVITY [None]
  - OCULAR HYPERAEMIA [None]
  - SUPERFICIAL INJURY OF EYE [None]
  - URTICARIA [None]
